FAERS Safety Report 12810734 (Version 4)
Quarter: 2021Q1

REPORT INFORMATION
  Report Type: Other
  Country: CA (occurrence: CA)
  Receive Date: 20161005
  Receipt Date: 20210125
  Transmission Date: 20210419
  Serious: Yes (Hospitalization, Other)
  Sender: FDA-Public Use
  Company Number: CA-APOTEX-2016AP012492

PATIENT

DRUGS (13)
  1. BUPROPION. [Suspect]
     Active Substance: BUPROPION
     Indication: DEPRESSION
     Dosage: 350 MG, UNK
     Route: 065
  2. APO?LAMOTRIGINE [Suspect]
     Active Substance: LAMOTRIGINE
     Indication: DEPRESSION
     Dosage: UNK
     Route: 065
  3. QUETIAPINE. [Suspect]
     Active Substance: QUETIAPINE
     Indication: DEPRESSION
     Dosage: 300 MILLIGRAM
     Route: 065
  4. QUETIAPINE. [Suspect]
     Active Substance: QUETIAPINE
     Dosage: 600 MILLIGRAM
     Route: 065
  5. APO?MIRTAZAPINE [Suspect]
     Active Substance: MIRTAZAPINE
     Indication: DEPRESSION
     Dosage: 45 MG, UNK
     Route: 065
  6. APO?LAMOTRIGINE [Suspect]
     Active Substance: LAMOTRIGINE
     Dosage: 75 MG, UNK
     Route: 065
  7. APO?METHOPRAZINE [Suspect]
     Active Substance: LEVOMEPROMAZINE MALEATE
     Indication: DEPRESSION
     Dosage: 25.0 MG, UNK
     Route: 065
  8. APO?LITHIUM CARBONATE [Suspect]
     Active Substance: LITHIUM CARBONATE
     Dosage: 1050 MG, UNK
     Route: 065
  9. VENLAFAXINE [Suspect]
     Active Substance: VENLAFAXINE HYDROCHLORIDE
     Indication: DEPRESSION
     Dosage: 150 MILLIGRAM
     Route: 065
  10. NORTRIPTYLINE [Suspect]
     Active Substance: NORTRIPTYLINE
     Indication: DEPRESSION
     Dosage: 50 MILLIGRAM
     Route: 065
  11. LEVOMEPROMAZINE MALEATE [Suspect]
     Active Substance: LEVOMEPROMAZINE MALEATE
     Indication: DEPRESSION
     Dosage: 25 MILLIGRAM
     Route: 065
  12. QUETIAPINE. [Suspect]
     Active Substance: QUETIAPINE
     Dosage: 200 MILLIGRAM
     Route: 065
  13. APO?LITHIUM CARBONATE [Suspect]
     Active Substance: LITHIUM CARBONATE
     Indication: DEPRESSION
     Dosage: 600 MG, UNK
     Route: 065

REACTIONS (15)
  - Feelings of worthlessness [Recovered/Resolved]
  - Insomnia [Recovered/Resolved]
  - Drug intolerance [Recovered/Resolved]
  - Major depression [Recovered/Resolved]
  - Decreased interest [Recovered/Resolved]
  - Emotional distress [Recovered/Resolved]
  - Depressed mood [Recovered/Resolved]
  - Obsessive-compulsive disorder [Recovered/Resolved]
  - Depression [Recovered/Resolved]
  - Psychomotor hyperactivity [Recovered/Resolved]
  - Sleep disorder [Recovered/Resolved]
  - Abulia [Recovered/Resolved]
  - Suicide attempt [Recovered/Resolved]
  - Restless legs syndrome [Recovered/Resolved]
  - Drug ineffective [Recovered/Resolved]
